FAERS Safety Report 5304476-7 (Version None)
Quarter: 2007Q2

REPORT INFORMATION
  Report Type: 
  Country: None (occurrence: None)
  Receive Date: 20070417
  Receipt Date: 20070417
  Transmission Date: 20071010
  Serious: Yes (Other)
  Sender: FDA-Public Use
  Company Number: None

PATIENT
  Age: 28 Year
  Sex: Male

DRUGS (1)
  1. DEPAKOTE ER [Suspect]
     Indication: PSYCHOTIC DISORDER
     Dosage: 1500 MG DAILY

REACTIONS (1)
  - NEUTROPHIL COUNT DECREASED [None]
